FAERS Safety Report 14076586 (Version 1)
Quarter: 2017Q4

REPORT INFORMATION
  Report Type: Report from Study
  Country: US (occurrence: US)
  Receive Date: 20171011
  Receipt Date: 20171011
  Transmission Date: 20180321
  Serious: Yes (Death)
  Sender: FDA-Public Use
  Company Number: US-BAUSCH-BL-2015-025372

PATIENT
  Sex: Female

DRUGS (2)
  1. XENAZINE [Suspect]
     Active Substance: TETRABENAZINE
     Route: 048
  2. XENAZINE [Suspect]
     Active Substance: TETRABENAZINE
     Indication: HUNTINGTON^S DISEASE
     Dosage: FIVE TABLETS PER DAY (TWO TABLETS IN MORNING AND NIGHT, ONE TABLET AT NOON)
     Route: 048
     Dates: start: 201409

REACTIONS (3)
  - Death [Fatal]
  - Prescribed overdose [Unknown]
  - Somnolence [Unknown]
